FAERS Safety Report 9313179 (Version 1)
Quarter: 2013Q2

REPORT INFORMATION
  Report Type: Spontaneous
  Country: BR (occurrence: BR)
  Receive Date: 20130528
  Receipt Date: 20130528
  Transmission Date: 20140414
  Serious: Yes (Other)
  Sender: FDA-Public Use
  Company Number: BR-ELI_LILLY_AND_COMPANY-BR201305005327

PATIENT
  Age: 55 Year
  Sex: Male
  Weight: 79 kg

DRUGS (2)
  1. HUMULIN NPH [Suspect]
     Indication: TYPE 2 DIABETES MELLITUS
     Dosage: 40 IU, BID
     Route: 058
     Dates: start: 201005
  2. GLIFAGE [Concomitant]
     Indication: DIABETES MELLITUS
     Dosage: 500 MG, TID
     Route: 065

REACTIONS (4)
  - Pancreatitis [Recovered/Resolved]
  - Infection [Unknown]
  - Blood glucose increased [Recovered/Resolved]
  - Depressed mood [Unknown]
